FAERS Safety Report 8389940-9 (Version None)
Quarter: 2012Q2

REPORT INFORMATION
  Report Type: 
  Country: None (occurrence: None)
  Receive Date: 20120518
  Receipt Date: 20120503
  Transmission Date: 20120825
  Serious: Yes (Other)
  Sender: FDA-Public Use
  Company Number: DSA_56425_2012

PATIENT
  Sex: Female

DRUGS (39)
  1. VITAMIN D [Concomitant]
  2. ZOFRAN [Concomitant]
  3. ZITHROMAX [Concomitant]
  4. NAPROXEN [Concomitant]
  5. AKNE-MYCIN [Concomitant]
  6. DIAZEPAM [Concomitant]
  7. TYLENOL REGULAR [Concomitant]
  8. PACLITAXEL [Concomitant]
  9. KEFLEX [Concomitant]
  10. FLEXERIL [Concomitant]
  11. DIFLUCAN [Concomitant]
  12. LIDOCAINE [Concomitant]
  13. TAMOXIFEN CITRATE [Concomitant]
  14. CALCIUM [Concomitant]
  15. MOTRIN [Concomitant]
  16. ATIVAN [Concomitant]
  17. ONDANSETRON [Concomitant]
  18. CEPHALEXIN [Concomitant]
  19. PROCHLORPERAZINE [Concomitant]
  20. MENTAX [Concomitant]
  21. ELIDEL [Suspect]
     Indication: ECZEMA
     Dosage: (20 MG QD)
     Dates: start: 20041101
  22. OXYCODONE HYDROCHLORIDE [Concomitant]
  23. CORTISPORIN /00271401/ [Concomitant]
  24. PERIDEX /00016001/ [Concomitant]
  25. CUTIVATE [Concomitant]
  26. CLINDAMYCIN [Concomitant]
  27. ALLEGRA-D 12 HOUR [Concomitant]
  28. NEO-POLYCIN [Concomitant]
  29. NEULASTA [Concomitant]
  30. CEFADROXIL [Concomitant]
  31. CIPRO /00697202/ [Concomitant]
  32. CYCLOBENZAPRINE [Concomitant]
  33. HYDROCODONE BITARTRATE [Concomitant]
  34. SULFAMETHOXAZOLE [Concomitant]
  35. BACTRIM DS [Concomitant]
  36. PERCOCET [Concomitant]
  37. COLACE [Concomitant]
  38. LOPROX [Concomitant]
  39. LUXIQ [Concomitant]

REACTIONS (28)
  - MYALGIA [None]
  - FATIGUE [None]
  - OESTROGEN RECEPTOR ASSAY POSITIVE [None]
  - LYMPHOEDEMA [None]
  - LEUKOCYTOSIS [None]
  - ALOPECIA [None]
  - URINARY TRACT INFECTION [None]
  - OTITIS EXTERNA [None]
  - METASTASES TO LYMPH NODES [None]
  - DERMOID CYST [None]
  - BREAST CANCER FEMALE [None]
  - ARTHRALGIA [None]
  - PROGESTERONE RECEPTOR ASSAY POSITIVE [None]
  - LYMPHADENOPATHY [None]
  - EJECTION FRACTION DECREASED [None]
  - JOINT STIFFNESS [None]
  - MAMMARY DUCT ECTASIA [None]
  - URINE LEUKOCYTE ESTERASE POSITIVE [None]
  - MUSCLE DISORDER [None]
  - DRY EYE [None]
  - INJURY [None]
  - ORAL DISORDER [None]
  - SCAR [None]
  - LIGAMENT DISORDER [None]
  - DYSGEUSIA [None]
  - PRURITUS [None]
  - SKIN EXFOLIATION [None]
  - DYSFUNCTIONAL UTERINE BLEEDING [None]
